FAERS Safety Report 7124121-8 (Version None)
Quarter: 2010Q4

REPORT INFORMATION
  Report Type: 
  Country: None (occurrence: None)
  Receive Date: 20101126
  Receipt Date: 20101116
  Transmission Date: 20110411
  Serious: Yes (Other)
  Sender: FDA-Public Use
  Company Number: PHEH2007US05605

PATIENT
  Sex: Female
  Weight: 57.142 kg

DRUGS (9)
  1. ESTRADERM [Suspect]
     Indication: MENOPAUSAL SYMPTOMS
     Dosage: 0.5 MG, UNK
     Route: 061
     Dates: start: 19890621, end: 19910201
  2. PREMPRO [Suspect]
     Indication: MENOPAUSAL SYMPTOMS
     Route: 048
     Dates: start: 19950714, end: 19970401
  3. PROVERA [Suspect]
     Indication: MENOPAUSAL SYMPTOMS
     Dosage: 10 MG, UNK
     Route: 048
     Dates: start: 19880326, end: 19950901
  4. PREMARIN [Suspect]
     Indication: MENOPAUSAL SYMPTOMS
     Dosage: 0.625/1.25 MG
     Route: 048
     Dates: start: 19850824, end: 19950901
  5. PREMPHASE (PREMARIN;CYCRIN 14/14) [Suspect]
     Indication: MENOPAUSAL SYMPTOMS
     Route: 048
     Dates: start: 19970513, end: 19971216
  6. ESTROGENS CONJUGATED W/MEDROXYPROGESTERONE [Suspect]
     Indication: MENOPAUSAL SYMPTOMS
  7. ESTRADIOL [Suspect]
     Dates: start: 19980101
  8. SYNTHROID [Concomitant]
  9. IMITREX [Concomitant]
     Dosage: 50 MG, UNK

REACTIONS (40)
  - ARTHRALGIA [None]
  - BLADDER IRRITATION [None]
  - BONE DENSITY DECREASED [None]
  - BONE DISORDER [None]
  - BREAST CANCER IN SITU [None]
  - BREAST CYST [None]
  - BREAST DISORDER [None]
  - BREAST LUMP REMOVAL [None]
  - BREAST MASS [None]
  - BREAST OEDEMA [None]
  - BREAST TENDERNESS [None]
  - CANCER GENE CARRIER [None]
  - CERVICITIS [None]
  - CHEST PAIN [None]
  - DEPRESSED MOOD [None]
  - DIVERTICULITIS [None]
  - DYSPNOEA [None]
  - EMOTIONAL DISTRESS [None]
  - EXOSTOSIS [None]
  - FALL [None]
  - FIBROADENOMA OF BREAST [None]
  - FIBROCYSTIC BREAST DISEASE [None]
  - HERPES SIMPLEX [None]
  - HOT FLUSH [None]
  - HYPOAESTHESIA [None]
  - IMPAIRED HEALING [None]
  - LYMPHADENECTOMY [None]
  - NECROSIS [None]
  - NUCLEAR MAGNETIC RESONANCE IMAGING ABNORMAL [None]
  - OSTEOMA [None]
  - OSTEOPENIA [None]
  - OSTEOSCLEROSIS [None]
  - PAIN IN EXTREMITY [None]
  - PALPITATIONS [None]
  - SKIN IRRITATION [None]
  - TENDON RUPTURE [None]
  - ULTRASOUND THYROID ABNORMAL [None]
  - UTERINE SPASM [None]
  - VAGINAL HAEMORRHAGE [None]
  - VULVOVAGINAL DRYNESS [None]
